FAERS Safety Report 6820796-9 (Version None)
Quarter: 2010Q3

REPORT INFORMATION
  Report Type: 
  Country: None (occurrence: None)
  Receive Date: 20100707
  Receipt Date: 20070522
  Transmission Date: 20110219
  Serious: No
  Sender: FDA-Public Use
  Company Number: US-PFIZER INC-2007041419

PATIENT
  Sex: Female

DRUGS (2)
  1. ZOLOFT [Suspect]
     Dates: start: 20070519
  2. ATIVAN [Suspect]
     Indication: SLEEP DISORDER

REACTIONS (5)
  - ANXIETY [None]
  - DIZZINESS [None]
  - HEART RATE INCREASED [None]
  - LETHARGY [None]
  - TREMOR [None]
